FAERS Safety Report 5077662-1 (Version None)
Quarter: 2006Q3

REPORT INFORMATION
  Report Type: 
  Country: None (occurrence: None)
  Receive Date: 20060810
  Receipt Date: 20060710
  Transmission Date: 20061208
  Serious: Yes (Death, Other)
  Sender: FDA-Public Use
  Company Number: US-BRISTOL-MYERS SQUIBB COMPANY-13438213

PATIENT
  Age: 60 Year
  Sex: Male

DRUGS (3)
  1. ERBITUX [Suspect]
     Indication: NEOPLASM MALIGNANT
     Route: 042
     Dates: start: 20060101, end: 20060101
  2. ETHYOL [Concomitant]
     Route: 058
     Dates: start: 20060524, end: 20060612
  3. RADIATION THERAPY [Concomitant]
     Dates: start: 20060524, end: 20060627

REACTIONS (4)
  - MYOCARDIAL INFARCTION [None]
  - NEOPLASM MALIGNANT [None]
  - SUDDEN DEATH [None]
  - VISION BLURRED [None]
